FAERS Safety Report 18807165 (Version 1)
Quarter: 2021Q1

REPORT INFORMATION
  Report Type: Spontaneous
  Country: US (occurrence: US)
  Receive Date: 20210128
  Receipt Date: 20210128
  Transmission Date: 20210419
  Serious: No
  Sender: FDA-Public Use
  Company Number: US-ENDO PHARMACEUTICALS INC-2020-004962

PATIENT
  Sex: Male

DRUGS (1)
  1. RHEUMATREX [Suspect]
     Active Substance: METHOTREXATE SODIUM
     Indication: PROSTATIC SPECIFIC ANTIGEN
     Dosage: 10 MG, WEEKLY
     Route: 048
     Dates: start: 2015, end: 2015

REACTIONS (1)
  - Abdominal discomfort [Unknown]
